FAERS Safety Report 9834545 (Version 6)
Quarter: 2014Q2

REPORT INFORMATION
  Report Type: Report from Study
  Country: PE (occurrence: PE)
  Receive Date: 20140122
  Receipt Date: 20140526
  Transmission Date: 20141212
  Serious: Yes (Hospitalization)
  Sender: FDA-Public Use
  Company Number: PE-ABBVIE-14P-127-1191257-00

PATIENT
  Age: 59 Year
  Sex: Female
  Weight: 82 kg

DRUGS (3)
  1. ZEMPLAR [Suspect]
     Indication: HYPERPARATHYROIDISM SECONDARY
     Route: 042
     Dates: start: 20130612
  2. NAPROXEN [Suspect]
     Indication: PRODUCT USED FOR UNKNOWN INDICATION
     Route: 048
     Dates: start: 20140109
  3. WARFARIN [Concomitant]
     Indication: PRODUCT USED FOR UNKNOWN INDICATION
     Dates: start: 201310

REACTIONS (9)
  - Ear pain [Recovering/Resolving]
  - Oropharyngeal pain [Recovering/Resolving]
  - Ear haemorrhage [Recovering/Resolving]
  - Vomiting [Recovering/Resolving]
  - Disorientation [Recovering/Resolving]
  - Aphasia [Recovering/Resolving]
  - Coma [Recovered/Resolved]
  - Movement disorder [Unknown]
  - Mobility decreased [Unknown]
